FAERS Safety Report 10645886 (Version 2)
Quarter: 2014Q4

REPORT INFORMATION
  Report Type: Spontaneous
  Country: JP (occurrence: JP)
  Receive Date: 20141211
  Receipt Date: 20141211
  Transmission Date: 20150529
  Serious: Yes (Hospitalization, Other)
  Sender: FDA-Public Use
  Company Number: JP-NOVOPROD-431024

PATIENT
  Age: 90 Year
  Sex: Female
  Weight: 47 kg

DRUGS (2)
  1. INNOLET 30R CHU [Suspect]
     Active Substance: INSULIN NOS
     Indication: TYPE 2 DIABETES MELLITUS
     Dosage: UNK
     Route: 058
  2. INNOLET 30R CHU [Suspect]
     Active Substance: INSULIN NOS
     Dosage: 1200 U
     Route: 058
     Dates: start: 20140702

REACTIONS (4)
  - Hepatic function abnormal [None]
  - Hypoglycaemia [Recovered/Resolved]
  - Suicide attempt [Unknown]
  - Intentional overdose [Unknown]

NARRATIVE: CASE EVENT DATE: 20140702
